FAERS Safety Report 5011112-6 (Version None)
Quarter: 2006Q2

REPORT INFORMATION
  Report Type: 
  Country: None (occurrence: None)
  Receive Date: 20060523
  Receipt Date: 20060515
  Transmission Date: 20061013
  Serious: Yes (Other)
  Sender: FDA-Public Use
  Company Number: 2006065212

PATIENT
  Sex: Female

DRUGS (4)
  1. NEURONTIN [Suspect]
     Indication: BACK PAIN
     Dosage: 600 MG, ORAL
     Route: 048
     Dates: start: 20060501, end: 20060501
  2. CARDIZEM [Concomitant]
  3. GINKGO BILOBA (GINKGO BILOBA) [Concomitant]
  4. ALL OTHER THERAPEUTIC PRODUCTS (ALL OTHER THERAPEUTIC PRODUCTS) [Concomitant]

REACTIONS (3)
  - BLOOD PRESSURE DECREASED [None]
  - PALLOR [None]
  - SYNCOPE [None]
